FAERS Safety Report 7916830-5 (Version None)
Quarter: 2011Q4

REPORT INFORMATION
  Report Type: 
  Country: None (occurrence: None)
  Receive Date: 20111114
  Receipt Date: 20111102
  Transmission Date: 20120403
  Serious: Yes (Hospitalization)
  Sender: FDA-Public Use
  Company Number: TCI2011A05864

PATIENT
  Age: 59 Year
  Sex: Male

DRUGS (2)
  1. LANSOPRAZOLE [Suspect]
     Dosage: 15 MG (15 MG, 2 IN 1 D), PER ORAL
     Route: 048
  2. PHENOBARBITAL, PHENYTOIN [Suspect]
     Dosage: PER ORAL
     Route: 048

REACTIONS (2)
  - RHABDOMYOLYSIS [None]
  - CONVULSION [None]
